FAERS Safety Report 14141047 (Version 1)
Quarter: 2017Q4

REPORT INFORMATION
  Report Type: Spontaneous
  Country: IN (occurrence: IN)
  Receive Date: 20171030
  Receipt Date: 20171030
  Transmission Date: 20180321
  Serious: Yes (Life-Threatening, Hospitalization, Other)
  Sender: FDA-Public Use
  Company Number: IN-TORRENT-00001397

PATIENT
  Age: 48 Year
  Sex: Male

DRUGS (3)
  1. RISPERIDONE. [Interacting]
     Active Substance: RISPERIDONE
  2. LORAZEPAM. [Interacting]
     Active Substance: LORAZEPAM
  3. VALPROIC ACID. [Suspect]
     Active Substance: VALPROIC ACID

REACTIONS (2)
  - Hyperammonaemic encephalopathy [Recovered/Resolved]
  - Drug interaction [Recovered/Resolved]
